FAERS Safety Report 15581390 (Version 1)
Quarter: 2018Q4

REPORT INFORMATION
  Report Type: Spontaneous
  Country: US (occurrence: US)
  Receive Date: 20181102
  Receipt Date: 20181102
  Transmission Date: 20190205
  Serious: No
  Sender: FDA-Public Use
  Company Number: US-RADIUS HEALTH INC.-2018US002117

PATIENT
  Sex: Female

DRUGS (1)
  1. TYMLOS [Suspect]
     Active Substance: ABALOPARATIDE
     Indication: OSTEOPOROSIS POSTMENOPAUSAL
     Dosage: 80 MCG DAILY
     Route: 058
     Dates: start: 20180726

REACTIONS (7)
  - Muscle spasms [Recovered/Resolved]
  - Muscle spasms [Recovering/Resolving]
  - Head discomfort [Recovered/Resolved]
  - Arthralgia [Recovering/Resolving]
  - Gastrooesophageal reflux disease [Unknown]
  - Dizziness [Unknown]
  - Palpitations [Recovering/Resolving]
